FAERS Safety Report 5444897-5 (Version None)
Quarter: 2007Q3

REPORT INFORMATION
  Report Type: 
  Country: None (occurrence: None)
  Receive Date: 20070906
  Receipt Date: 20070829
  Transmission Date: 20080115
  Serious: Yes (Hospitalization)
  Sender: FDA-Public Use
  Company Number: A0677368A

PATIENT
  Age: 72 Year
  Sex: Female

DRUGS (2)
  1. FLOVENT [Suspect]
     Dosage: 2PUFF TWICE PER DAY
     Route: 065
  2. ATROVENT [Concomitant]

REACTIONS (3)
  - DYSPHONIA [None]
  - KNEE OPERATION [None]
  - SHOULDER OPERATION [None]
